FAERS Safety Report 6085035-8 (Version None)
Quarter: 2009Q1

REPORT INFORMATION
  Report Type: 
  Country: None (occurrence: None)
  Receive Date: 20090220
  Receipt Date: 20090209
  Transmission Date: 20090719
  Serious: Yes (Life-Threatening, Hospitalization)
  Sender: FDA-Public Use
  Company Number: JP-AMGEN-US323480

PATIENT
  Sex: Male
  Weight: 67 kg

DRUGS (11)
  1. ENBREL [Suspect]
     Indication: RHEUMATOID ARTHRITIS
     Route: 058
     Dates: start: 20080825, end: 20081201
  2. AMARYL [Concomitant]
     Indication: DIABETES MELLITUS
     Route: 048
  3. CELECOXIB [Concomitant]
     Indication: RHEUMATOID ARTHRITIS
     Route: 048
  4. PREDNISOLONE [Concomitant]
     Indication: RHEUMATOID ARTHRITIS
     Route: 048
     Dates: start: 20080701
  5. METFORMIN HYDROCHLORIDE [Concomitant]
     Indication: DIABETES MELLITUS
     Route: 048
  6. ZOLPIDEM TARTRATE [Concomitant]
     Indication: INSOMNIA
     Route: 048
  7. ISCOTIN [Concomitant]
     Indication: ANTIBIOTIC PROPHYLAXIS
     Route: 048
  8. ASPIRIN [Concomitant]
     Route: 048
  9. CYANOCOBALAMIN [Concomitant]
  10. PYRIDOXINE HYDROCHLORIDE [Concomitant]
  11. THIAMINE HCL [Concomitant]

REACTIONS (4)
  - CONDITION AGGRAVATED [None]
  - FIBROSIS [None]
  - INTERSTITIAL LUNG DISEASE [None]
  - PNEUMOCYSTIS JIROVECI PNEUMONIA [None]
